FAERS Safety Report 20848579 (Version 1)
Quarter: 2022Q2

REPORT INFORMATION
  Report Type: Other
  Country: US (occurrence: None)
  Receive Date: 20220519
  Receipt Date: 20220519
  Transmission Date: 20220721
  Serious: Yes (Other)
  Sender: FDA-Public Use
  Company Number: US-ROCHE-3098447

PATIENT
  Sex: Female

DRUGS (1)
  1. XELODA [Suspect]
     Active Substance: CAPECITABINE
     Indication: Breast cancer metastatic
     Dosage: TAKE 4 TABLET BY MOUTH TWICE A DAY (TAKE 4 TABLETS AFTER BREAKFAST AND 4 TABLETS AFTER DINNER) 2 WEE
     Route: 048

REACTIONS (2)
  - Lung neoplasm malignant [Unknown]
  - COVID-19 [Unknown]
